FAERS Safety Report 18312216 (Version 1)
Quarter: 2020Q3

REPORT INFORMATION
  Report Type: Spontaneous
  Country: US (occurrence: US)
  Receive Date: 20200925
  Receipt Date: 20200925
  Transmission Date: 20201103
  Serious: No
  Sender: FDA-Public Use
  Company Number: None

PATIENT
  Age: 45 Year
  Sex: Female
  Weight: 97.2 kg

DRUGS (4)
  1. CALCIUM [Concomitant]
     Active Substance: CALCIUM
  2. SMZ/TMP DS 800?160MG TABLETS FOR BACTRIM [Suspect]
     Active Substance: SULFAMETHOXAZOLE\TRIMETHOPRIM
     Indication: URINARY TRACT INFECTION
     Dosage: ?          QUANTITY:1 TABLET(S);?
     Route: 048
     Dates: start: 20200922, end: 20200922
  3. COLLAGEN [Concomitant]
     Active Substance: COLLAGEN
  4. BARIATRIC VITAMIN [Concomitant]

REACTIONS (6)
  - Dyspnoea [None]
  - Pruritus [None]
  - Fungal infection [None]
  - Cough [None]
  - Wheezing [None]
  - Paraesthesia [None]

NARRATIVE: CASE EVENT DATE: 20200922
